FAERS Safety Report 9202808 (Version 1)
Quarter: 2013Q2

REPORT INFORMATION
  Report Type: Spontaneous
  Country: US (occurrence: US)
  Receive Date: 20130401
  Receipt Date: 20130401
  Transmission Date: 20140414
  Serious: Yes (Other)
  Sender: FDA-Public Use
  Company Number: CHPA2012US026452

PATIENT
  Age: 79 Year
  Sex: Female

DRUGS (2)
  1. BENEFIBER W/ WHEAT DEXTRIN [Suspect]
     Indication: NUTRITIONAL SUPPLEMENTATION
     Dosage: 2 TSP, ONCE OR TWICE A DAY
     Route: 048
     Dates: start: 2009
  2. BENEFIBER W/ WHEAT DEXTRIN [Suspect]
     Indication: BOWEL MOVEMENT IRREGULARITY

REACTIONS (3)
  - Hypertension [Not Recovered/Not Resolved]
  - Off label use [Unknown]
  - Underdose [Unknown]
